FAERS Safety Report 20363904 (Version 1)
Quarter: 2022Q1

REPORT INFORMATION
  Report Type: Spontaneous
  Country: CA (occurrence: CA)
  Receive Date: 20220121
  Receipt Date: 20220121
  Transmission Date: 20220424
  Serious: Yes (Death)
  Sender: FDA-Public Use
  Company Number: CA-PFIZER INC-202200046391

PATIENT
  Sex: Male

DRUGS (12)
  1. CARBOPLATIN [Suspect]
     Active Substance: CARBOPLATIN
  2. PACLITAXEL [Suspect]
     Active Substance: PACLITAXEL
  3. KEYTRUDA [Suspect]
     Active Substance: PEMBROLIZUMAB
  4. QUETIAPINE [Concomitant]
     Active Substance: QUETIAPINE
  5. QUININE SULFATE [Concomitant]
     Active Substance: QUININE SULFATE
  6. RAMIPRIL [Concomitant]
     Active Substance: RAMIPRIL
  7. ZOPICLONE [Concomitant]
     Active Substance: ZOPICLONE
  8. ACETAMINOPHEN [Concomitant]
     Active Substance: ACETAMINOPHEN
  9. ATORVASTATIN CALCIUM [Concomitant]
     Active Substance: ATORVASTATIN CALCIUM
     Route: 048
  10. CALCIUM\MAGNESIUM [Concomitant]
     Active Substance: CALCIUM\MAGNESIUM
  11. VITAMINS [Concomitant]
     Active Substance: VITAMINS
  12. OXYCODONE [Concomitant]
     Active Substance: OXYCODONE

REACTIONS (2)
  - Somnolence [Fatal]
  - Speech disorder [Fatal]
